FAERS Safety Report 4350429-5 (Version None)
Quarter: 2004Q2

REPORT INFORMATION
  Report Type: 
  Country: None (occurrence: None)
  Receive Date: 20040427
  Receipt Date: 20040415
  Transmission Date: 20050107
  Serious: Yes (Death, Hospitalization)
  Sender: FDA-Public Use
  Company Number: 04P-163-0257931-00

PATIENT
  Age: 64 Year
  Sex: Female

DRUGS (1)
  1. HUMIRA [Suspect]
     Indication: RHEUMATOID ARTHRITIS
     Dosage: 40 MG 1 IN 2 WK, SUBCUTANEOUS
     Route: 058
     Dates: start: 20031205, end: 20040101

REACTIONS (3)
  - AORTIC DISSECTION [None]
  - ELECTROCARDIOGRAM ABNORMAL [None]
  - GASTROENTERITIS [None]
